FAERS Safety Report 4810237-5 (Version None)
Quarter: 2005Q4

REPORT INFORMATION
  Report Type: 
  Country: None (occurrence: None)
  Receive Date: 20051026
  Receipt Date: 20050511
  Transmission Date: 20060501
  Serious: Yes (Other)
  Sender: FDA-Public Use
  Company Number: FR-GLAXOSMITHKLINE-B0381611A

PATIENT
  Age: 61 Year
  Sex: Male
  Weight: 74 kg

DRUGS (6)
  1. LAMICTAL [Suspect]
     Indication: EPILEPSY
     Dosage: 300MG PER DAY
     Route: 048
  2. KARDEGIC [Concomitant]
     Dosage: 75MG PER DAY
     Route: 048
  3. MONOTILDIEM LP [Concomitant]
     Dosage: 1TAB PER DAY
     Route: 048
  4. MOPRAL [Concomitant]
     Dosage: 1TAB PER DAY
     Route: 048
  5. LYSANXIA [Concomitant]
     Indication: ANXIETY
     Dosage: 10MG PER DAY
     Route: 048
  6. DIPIPERON [Concomitant]
     Indication: DRUG USE FOR UNKNOWN INDICATION
     Dosage: .5TAB PER DAY
     Route: 048

REACTIONS (3)
  - COGWHEEL RIGIDITY [None]
  - PARKINSONISM [None]
  - TREMOR [None]
